FAERS Safety Report 7506407-8 (Version None)
Quarter: 2011Q2

REPORT INFORMATION
  Report Type: 
  Country: None (occurrence: None)
  Receive Date: 20110526
  Receipt Date: 20110523
  Transmission Date: 20111010
  Serious: Yes (Other)
  Sender: FDA-Public Use
  Company Number: JP-SANOFI-AVENTIS-2009SA010205

PATIENT
  Age: 67 Year
  Sex: Male
  Weight: 81 kg

DRUGS (14)
  1. TOWARAT [Concomitant]
     Dates: start: 20091117, end: 20100126
  2. DEPAS [Concomitant]
     Dates: start: 20091117, end: 20100126
  3. SUNRYTHM [Concomitant]
     Indication: PALPITATIONS
     Dates: start: 20091117, end: 20100225
  4. SAIBOKU-TO [Concomitant]
     Dates: start: 20091218, end: 20100101
  5. METFORMIN HCL [Concomitant]
     Dates: start: 20091117, end: 20100126
  6. VERAPAMIL HCL [Concomitant]
     Indication: PALPITATIONS
     Dates: start: 20091117, end: 20100225
  7. ALLOPURINOL [Concomitant]
     Dates: start: 20091117, end: 20100126
  8. ZANTAC [Concomitant]
     Dates: start: 20091117, end: 20100126
  9. BECLOMETASONE DIPROPIONATE [Concomitant]
     Route: 045
     Dates: start: 20091120, end: 20091218
  10. KIPRES [Concomitant]
     Dates: start: 20091120, end: 20091204
  11. ANKISOL [Concomitant]
     Dates: start: 20091120, end: 20091204
  12. CANDESARTAN CILEXETIL [Concomitant]
     Dates: start: 20091117, end: 20100126
  13. GLYBURIDE [Concomitant]
     Dates: start: 20091117, end: 20100126
  14. ALLEGRA [Suspect]
     Route: 048
     Dates: start: 20091120, end: 20091123

REACTIONS (1)
  - CARDIAC DISORDER [None]
